FAERS Safety Report 9914404 (Version 2)
Quarter: 2014Q1

REPORT INFORMATION
  Report Type: Spontaneous
  Country: US (occurrence: US)
  Receive Date: 20140220
  Receipt Date: 20140220
  Transmission Date: 20141002
  Serious: No
  Sender: FDA-Public Use
  Company Number: US-GILEAD-2011-0045536

PATIENT
  Sex: Male

DRUGS (1)
  1. ATRIPLA [Suspect]
     Indication: PRODUCT USED FOR UNKNOWN INDICATION
     Dosage: UNK UNKNOWN, UNK

REACTIONS (3)
  - Road traffic accident [Unknown]
  - Contusion [Unknown]
  - Pain [Unknown]
